FAERS Safety Report 6357516-0 (Version None)
Quarter: 2009Q3

REPORT INFORMATION
  Report Type: 
  Country: None (occurrence: None)
  Receive Date: 20090916
  Receipt Date: 20090904
  Transmission Date: 20100115
  Serious: Yes (Other)
  Sender: FDA-Public Use
  Company Number: ES-WYE-H10841709

PATIENT
  Sex: Female

DRUGS (6)
  1. SIROLIMUS [Suspect]
     Indication: PROPHYLAXIS AGAINST TRANSPLANT REJECTION
     Dosage: DOSE VARIED TO ACHIEVE THERAPEUTIC BLOOD LEVELS
     Route: 065
  2. ATORVASTATIN [Concomitant]
     Indication: DYSLIPIDAEMIA
  3. LISINOPRIL [Concomitant]
     Indication: PROTEINURIA
  4. MYCOPHENOLATE MOFETIL [Concomitant]
     Indication: PROPHYLAXIS AGAINST TRANSPLANT REJECTION
  5. PREDNISONE [Concomitant]
     Indication: PROPHYLAXIS AGAINST TRANSPLANT REJECTION
     Dosage: 0.1 MG/KG PER DAY
     Route: 065
  6. PREDNISONE [Concomitant]
     Dosage: 0.04 MG/KG PER DAY
     Route: 065

REACTIONS (1)
  - GROWTH RETARDATION [None]
